FAERS Safety Report 18264926 (Version 2)
Quarter: 2020Q3

REPORT INFORMATION
  Report Type: Report from Study
  Country: US (occurrence: US)
  Receive Date: 20200914
  Receipt Date: 20200929
  Transmission Date: 20201103
  Serious: Yes (Other)
  Sender: FDA-Public Use
  Company Number: US-BIOGEN-2020BI00846319

PATIENT
  Age: 54 Year
  Sex: Male

DRUGS (14)
  1. TECFIDERA [Suspect]
     Active Substance: DIMETHYL FUMARATE
     Dosage: MAINTENANCE DOSE
     Route: 065
     Dates: start: 20200308
  2. TECFIDERA [Suspect]
     Active Substance: DIMETHYL FUMARATE
     Dosage: MAINTENANCE DOSE
     Route: 048
     Dates: start: 20200127
  3. VITAMIN B12 COMPLEX WITH ZINC [Concomitant]
     Route: 065
  4. TECFIDERA [Suspect]
     Active Substance: DIMETHYL FUMARATE
     Route: 065
     Dates: start: 20200124
  5. ATORVASTATIN [Concomitant]
     Active Substance: ATORVASTATIN
     Route: 065
  6. LISINOPRIL. [Concomitant]
     Active Substance: LISINOPRIL
     Route: 065
  7. JANUVIA [Concomitant]
     Active Substance: SITAGLIPTIN PHOSPHATE
     Route: 065
  8. ASPIRIN. [Concomitant]
     Active Substance: ASPIRIN
     Route: 065
  9. TECFIDERA [Suspect]
     Active Substance: DIMETHYL FUMARATE
     Indication: MULTIPLE SCLEROSIS
     Dosage: STARTING DOSE
     Route: 048
     Dates: start: 20200301, end: 20200307
  10. METOPROLOL. [Concomitant]
     Active Substance: METOPROLOL
     Route: 065
  11. VITAMIN D [Concomitant]
     Active Substance: VITAMIN D NOS
     Route: 065
  12. WAL?PHED NOS [Concomitant]
     Indication: PRODUCT USED FOR UNKNOWN INDICATION
     Route: 065
  13. TECFIDERA [Suspect]
     Active Substance: DIMETHYL FUMARATE
     Route: 048
     Dates: start: 20200125
  14. XARELTO [Concomitant]
     Active Substance: RIVAROXABAN
     Route: 065

REACTIONS (19)
  - Hypoaesthesia [Not Recovered/Not Resolved]
  - Blindness transient [Unknown]
  - Product dose omission issue [Unknown]
  - Bladder disorder [Unknown]
  - Dry mouth [Unknown]
  - Multiple sclerosis [Not Recovered/Not Resolved]
  - Onychoclasis [Unknown]
  - Pain in extremity [Unknown]
  - Weight increased [Not Recovered/Not Resolved]
  - Musculoskeletal disorder [Unknown]
  - Drug ineffective [Unknown]
  - Rectal discharge [Not Recovered/Not Resolved]
  - Abdominal discomfort [Recovered/Resolved]
  - Nausea [Unknown]
  - Gastrointestinal disorder [Unknown]
  - Balance disorder [Unknown]
  - Confusional state [Not Recovered/Not Resolved]
  - Muscular weakness [Not Recovered/Not Resolved]
  - Hot flush [Recovered/Resolved]

NARRATIVE: CASE EVENT DATE: 20200301
